FAERS Safety Report 5109982-6 (Version None)
Quarter: 2006Q3

REPORT INFORMATION
  Report Type: 
  Country: None (occurrence: None)
  Receive Date: 20060919
  Receipt Date: 20060919
  Transmission Date: 20061208
  Serious: Yes (Hospitalization)
  Sender: FDA-Public Use
  Company Number: None

PATIENT
  Age: 91 Year
  Sex: Female
  Weight: 63.6 kg

DRUGS (12)
  1. WARFARIN SODIUM [Suspect]
     Indication: THROMBOSIS PROPHYLAXIS
     Dosage: 2.5 MG DAILY X 5MG M,F [CHRONIC]
  2. ASPIRIN [Suspect]
     Indication: THROMBOSIS PROPHYLAXIS
     Dosage: 81 MG DAILY PO [CHRONIC]
     Route: 048
  3. PREVACID [Concomitant]
  4. ALTACE [Concomitant]
  5. LANOXIN [Concomitant]
  6. CENTRUM [Concomitant]
  7. CALCIUM GLUCONATE [Concomitant]
  8. FE [Concomitant]
  9. NAMENDA [Concomitant]
  10. ZOLOFT [Concomitant]
  11. ARICEPT [Concomitant]
  12. LEVOTHROID [Concomitant]

REACTIONS (2)
  - ANAEMIA [None]
  - LOWER GASTROINTESTINAL HAEMORRHAGE [None]
